FAERS Safety Report 18518408 (Version 1)
Quarter: 2020Q4

REPORT INFORMATION
  Report Type: Spontaneous
  Country: JP (occurrence: JP)
  Receive Date: 20201118
  Receipt Date: 20201118
  Transmission Date: 20210114
  Serious: Yes (Hospitalization, Other)
  Sender: FDA-Public Use
  Company Number: NVSJ2020JP011896

PATIENT
  Age: 67 Year
  Sex: Male

DRUGS (1)
  1. PAZOPANIB [Suspect]
     Active Substance: PAZOPANIB
     Indication: RENAL CELL CARCINOMA
     Dosage: UNK
     Route: 048

REACTIONS (6)
  - Hepatic function abnormal [Unknown]
  - Inflammation [Unknown]
  - Acute kidney injury [Recovering/Resolving]
  - Pyrexia [Unknown]
  - Renal tubular necrosis [Recovering/Resolving]
  - Pancytopenia [Recovering/Resolving]
